FAERS Safety Report 5135070-9 (Version None)
Quarter: 2006Q4

REPORT INFORMATION
  Report Type: 
  Country: None (occurrence: None)
  Receive Date: 20060831
  Receipt Date: 20060223
  Transmission Date: 20070319
  Serious: Yes (Other)
  Sender: FDA-Public Use
  Company Number: 04-10-1426

PATIENT
  Age: 36 Year
  Sex: Male
  Weight: 81.6475 kg

DRUGS (5)
  1. TRAMADOL (TRAMADOL) (TABLETS) [Suspect]
     Indication: PAIN
     Dosage: 50 MG Q8HR PRN, ORAL
     Route: 048
     Dates: start: 20030416, end: 20040509
  2. PHENYTOIN [Concomitant]
  3. GLIPIZIDE [Concomitant]
  4. METFORMIN HCL [Concomitant]
  5. PHENYTOIN SODIUM CAP [Concomitant]

REACTIONS (6)
  - AGGRESSION [None]
  - CONFUSIONAL STATE [None]
  - DRUG DEPENDENCE [None]
  - EPISTAXIS [None]
  - HALLUCINATION [None]
  - INSOMNIA [None]
